FAERS Safety Report 6816666-2 (Version None)
Quarter: 2010Q3

REPORT INFORMATION
  Report Type: 
  Country: None (occurrence: None)
  Receive Date: 20100706
  Receipt Date: 20100626
  Transmission Date: 20110219
  Serious: Yes (Other)
  Sender: FDA-Public Use
  Company Number: US-JNJFOC-20100503020

PATIENT
  Age: 7 Month
  Sex: Male

DRUGS (2)
  1. CHILDREN'S TYLENOL SUSPENSION [Suspect]
     Route: 048
  2. CHILDREN'S TYLENOL SUSPENSION [Suspect]
     Indication: TEETHING
     Route: 048

REACTIONS (4)
  - FEBRILE CONVULSION [None]
  - INITIAL INSOMNIA [None]
  - IRRITABILITY [None]
  - PRODUCT QUALITY ISSUE [None]
